FAERS Safety Report 21365835 (Version 1)
Quarter: 2022Q3

REPORT INFORMATION
  Report Type: Spontaneous
  Country: IN (occurrence: IN)
  Receive Date: 20220922
  Receipt Date: 20220922
  Transmission Date: 20221026
  Serious: Yes (Hospitalization, Other)
  Sender: FDA-Public Use
  Company Number: IN-GILEAD-2022-0597700

PATIENT
  Age: 47 Year
  Sex: Female

DRUGS (1)
  1. AMBRISENTAN [Suspect]
     Active Substance: AMBRISENTAN
     Indication: Congenital cardiovascular anomaly
     Route: 065

REACTIONS (3)
  - Angina pectoris [Recovering/Resolving]
  - Dyspnoea exertional [Unknown]
  - Off label use [Recovering/Resolving]
